FAERS Safety Report 12952273 (Version 1)
Quarter: 2016Q4

REPORT INFORMATION
  Report Type: Spontaneous
  Country: US (occurrence: US)
  Receive Date: 20161117
  Receipt Date: 20161117
  Transmission Date: 20170207
  Serious: Yes (Other)
  Sender: FDA-Public Use
  Company Number: US-NOVOPROD-494554

PATIENT
  Age: 82 Year
  Sex: Male
  Weight: 70.8 kg

DRUGS (2)
  1. CALCIUM GLUCONATE. [Concomitant]
     Active Substance: CALCIUM GLUCONATE
     Indication: BLOOD POTASSIUM INCREASED
  2. NOVOLOG [Suspect]
     Active Substance: INSULIN ASPART
     Indication: BLOOD POTASSIUM INCREASED
     Dosage: 1000 U, UNK
     Route: 042
     Dates: start: 20160525, end: 20160525

REACTIONS (3)
  - Incorrect dose administered [Unknown]
  - Off label use [Unknown]
  - Blood glucose decreased [Recovered/Resolved]

NARRATIVE: CASE EVENT DATE: 201605
